FAERS Safety Report 5351475-5 (Version None)
Quarter: 2007Q2

REPORT INFORMATION
  Report Type: 
  Country: None (occurrence: None)
  Receive Date: 20070521
  Receipt Date: 20070403
  Transmission Date: 20071010
  Serious: No
  Sender: FDA-Public Use
  Company Number: WAES 0704USA00768

PATIENT
  Age: 71 Year
  Sex: Female
  Weight: 78.9259 kg

DRUGS (8)
  1. JANUVIA [Suspect]
     Dosage: PO
     Route: 048
  2. ACTOS [Concomitant]
  3. AMERIDE [Concomitant]
  4. DILTIAZEM HYDROCHLORIDE [Concomitant]
  5. LISINOPRIL [Concomitant]
  6. MAGNESIUM GLUCONATE [Concomitant]
  7. METFORMIN [Concomitant]
  8. OMEPRAZOLE [Concomitant]

REACTIONS (2)
  - BLOOD CREATINE PHOSPHOKINASE INCREASED [None]
  - MYALGIA [None]
